FAERS Safety Report 7724178-7 (Version None)
Quarter: 2011Q3

REPORT INFORMATION
  Report Type: 
  Country: None (occurrence: None)
  Receive Date: 20110901
  Receipt Date: 20110819
  Transmission Date: 20111222
  Serious: Yes (Death, Hospitalization)
  Sender: FDA-Public Use
  Company Number: US-ROCHE-788965

PATIENT
  Sex: Male
  Weight: 76.7 kg

DRUGS (29)
  1. ATROPINE [Concomitant]
     Indication: PRODUCT USED FOR UNKNOWN INDICATION
     Dosage: 0.4 MG, 1/WEEK
     Route: 040
     Dates: start: 20110516, end: 20110614
  2. ATROPINE [Concomitant]
     Dosage: 0.4 MG, 1/WEEK
     Route: 040
     Dates: start: 20110516, end: 20110614
  3. ALOXI [Concomitant]
     Indication: NAUSEA
     Dosage: 0.25 MG, 1/WEEK
     Route: 042
     Dates: start: 20110516, end: 20110614
  4. CETUXIMAB [Concomitant]
     Dosage: 500 MG, 1/WEEK
     Route: 042
     Dates: start: 20110523, end: 20110614
  5. IRINOTECAN HCL [Concomitant]
     Indication: COLORECTAL CANCER
     Dosage: 250 MG, 1/WEEK
     Route: 042
     Dates: start: 20110516, end: 20110614
  6. IRINOTECAN HCL [Concomitant]
     Dosage: 250 MG, 1/WEEK
     Route: 042
     Dates: start: 20110516, end: 20110614
  7. COMPAZINE [Concomitant]
     Indication: NAUSEA
     Dosage: 10 MG, QID
     Dates: end: 20110624
  8. ALOXI [Concomitant]
     Dosage: 0.25 MG, 1/WEEK
     Route: 042
     Dates: start: 20110516, end: 20110614
  9. DIPHENHYDRAMINE HCL [Concomitant]
     Dosage: 25 MG, 1/WEEK
     Route: 042
     Dates: start: 20110516, end: 20110614
  10. FOLIC ACID [Concomitant]
     Dosage: 3 MG, QD
     Route: 048
     Dates: start: 20110418, end: 20110624
  11. AVASTIN [Suspect]
     Indication: COLORECTAL CANCER
     Dosage: 410 MG, Q2W
     Route: 042
     Dates: start: 20110516, end: 20110606
  12. CETUXIMAB [Concomitant]
     Indication: COLORECTAL CANCER
     Dosage: 800 MG, UNK
     Route: 042
     Dates: start: 20110516, end: 20110614
  13. DEXAMETHASONE [Concomitant]
     Indication: CHEMOTHERAPY
     Dosage: 2 MG, 1/WEEK
     Route: 042
     Dates: start: 20110516, end: 20110614
  14. NEUPOGEN [Concomitant]
  15. BENADRYL [Concomitant]
     Dosage: 5 ML, QID
     Route: 048
     Dates: start: 20110621, end: 20110624
  16. MEGACE [Concomitant]
     Dosage: 625 MG/ML, QD
     Route: 048
     Dates: start: 20110621, end: 20110624
  17. BENADRYL [Concomitant]
     Dosage: 5 ML, QID
     Route: 048
     Dates: start: 20110621, end: 20110624
  18. LOMOTIL [Concomitant]
     Indication: PRODUCT USED FOR UNKNOWN INDICATION
     Dosage: 1 TABLET, Q4H
     Route: 048
     Dates: start: 20110622, end: 20110624
  19. TOPROL-XL [Concomitant]
     Indication: HYPERTENSION
     Dosage: 100 MG, QD
     Route: 048
     Dates: end: 20110624
  20. CETUXIMAB [Concomitant]
     Dosage: 500 MG, 1/WEEK
     Route: 042
     Dates: start: 20110523, end: 20110614
  21. DEXAMETHASONE [Concomitant]
     Dosage: 2 MG, 1/WEEK
     Route: 042
     Dates: start: 20110516, end: 20110614
  22. MICARDIS HCT [Concomitant]
     Indication: HYPERTENSION
     Dosage: 1.0 UNK, QD
     Route: 048
     Dates: end: 20110624
  23. AVASTIN [Suspect]
     Dosage: 410 MG, Q2W
     Route: 042
     Dates: start: 20110516, end: 20110606
  24. CETUXIMAB [Concomitant]
     Dosage: 800 MG, UNK
     Route: 042
     Dates: start: 20110516, end: 20110614
  25. DIPHENHYDRAMINE HCL [Concomitant]
     Dosage: 25 MG, 1/WEEK
     Route: 042
     Dates: start: 20110516, end: 20110614
  26. FOLIC ACID [Concomitant]
     Dosage: 3 MG, QD
     Route: 048
     Dates: start: 20110418, end: 20110624
  27. FAMOTIDINE [Concomitant]
     Dosage: 20 MG, 1/WEEK
     Route: 042
     Dates: start: 20110516, end: 20110614
  28. COUMADIN [Concomitant]
     Dosage: 2 MG, QD
     Route: 048
     Dates: end: 20110624
  29. FAMOTIDINE [Concomitant]
     Dosage: 20 MG, 1/WEEK
     Route: 042
     Dates: start: 20110516, end: 20110614

REACTIONS (1)
  - PNEUMATOSIS INTESTINALIS [None]
